FAERS Safety Report 4546298-0 (Version None)
Quarter: 2005Q1

REPORT INFORMATION
  Report Type: 
  Country: None (occurrence: None)
  Receive Date: 20050106
  Receipt Date: 20041221
  Transmission Date: 20050727
  Serious: Yes (Hospitalization)
  Sender: FDA-Public Use
  Company Number: JP-JNJFOC-20041205426

PATIENT
  Age: 79 Year
  Sex: Female

DRUGS (17)
  1. LEVOFLOXACIN [Suspect]
     Indication: OBSTRUCTIVE CHRONIC BRONCHITIS WITH ACUTE EXACERBATION
     Route: 049
  2. KARDEGIC [Concomitant]
     Route: 049
  3. LEVOTHYROXINE SODIUM [Concomitant]
     Route: 049
  4. SEROPRAM [Concomitant]
     Route: 049
  5. BYZAAR [Concomitant]
     Route: 049
  6. BYZAAR [Concomitant]
     Route: 049
  7. ELISOR [Concomitant]
     Route: 049
  8. HYPERIUM [Concomitant]
  9. DI-ANTALVIC [Concomitant]
  10. DI-ANTALVIC [Concomitant]
  11. FORLAX [Concomitant]
  12. LASILIX [Concomitant]
  13. DIFFU K [Concomitant]
  14. NUTRIGYL [Concomitant]
  15. NITRODERM [Concomitant]
  16. INSULTARD [Concomitant]
  17. FONX [Concomitant]

REACTIONS (2)
  - LEUKOPENIA [None]
  - NEUTROPENIA [None]
